FAERS Safety Report 25214915 (Version 1)
Quarter: 2025Q2

REPORT INFORMATION
  Report Type: Spontaneous
  Country: US (occurrence: None)
  Receive Date: 20250418
  Receipt Date: 20250418
  Transmission Date: 20250716
  Serious: Yes (Life-Threatening, Hospitalization, Disabling)
  Sender: FDA-CTU
  Company Number: None

PATIENT
  Age: 60 Year
  Sex: Male
  Weight: 65.25 kg

DRUGS (9)
  1. DAPSONE [Suspect]
     Active Substance: DAPSONE
     Indication: Skin disorder
     Dosage: 2 TABLET(S) TWICE A DAY ORAL
     Route: 048
     Dates: start: 20250311, end: 20250315
  2. RINVOQ [Suspect]
     Active Substance: UPADACITINIB
  3. DUPIXENT [Suspect]
     Active Substance: DUPILUMAB
  4. HYDROXYZINE [Concomitant]
     Active Substance: HYDROXYZINE HYDROCHLORIDE
  5. GABAPENTIN [Concomitant]
     Active Substance: GABAPENTIN
  6. DULOXETINE [Concomitant]
     Active Substance: DULOXETINE
  7. OXCARBAZEPINE [Concomitant]
     Active Substance: OXCARBAZEPINE
  8. VITAMIN C [Concomitant]
     Active Substance: ASCORBIC ACID
  9. TYLENOL [Concomitant]
     Active Substance: ACETAMINOPHEN

REACTIONS (3)
  - Methaemoglobinaemia [None]
  - Metabolic disorder [None]
  - Respiratory failure [None]

NARRATIVE: CASE EVENT DATE: 20250315
